FAERS Safety Report 7424400-0 (Version None)
Quarter: 2011Q2

REPORT INFORMATION
  Report Type: 
  Country: None (occurrence: None)
  Receive Date: 20110419
  Receipt Date: 20110415
  Transmission Date: 20111010
  Serious: Yes (Death, Life-Threatening, Hospitalization, Disabling, Other)
  Sender: FDA-Public Use
  Company Number: NL-B.I. PHARMACEUTICALS,INC./RIDGEFIELD-2011-NL-00166NL

PATIENT
  Age: 81 Year
  Sex: Male
  Weight: 78 kg

DRUGS (11)
  1. ASPIRIN [Suspect]
     Dosage: 80 MG
     Route: 048
     Dates: start: 20110131
  2. CLOPIDOGREL [Suspect]
     Dosage: 75 MG
     Route: 048
     Dates: start: 20110131
  3. BIVALIRUDIN [Suspect]
     Dosage: 0.25 MG/KG
     Route: 042
     Dates: start: 20110130, end: 20110131
  4. ASPIRIN [Suspect]
     Indication: ACUTE CORONARY SYNDROME
     Dosage: {=100 MG
  5. METOPROLOL [Concomitant]
  6. BIVALIRUDIN [Suspect]
     Indication: PERCUTANEOUS CORONARY INTERVENTION
     Dosage: INJECTION 0.75 MG/KG BOLUS
     Route: 042
     Dates: start: 20110130, end: 20110130
  7. CLOPIDOGREL [Suspect]
     Indication: ACUTE CORONARY SYNDROME
     Dosage: MAINTENANCE DOSE
     Dates: start: 20110130, end: 20110130
  8. PRAVASTATIN [Concomitant]
  9. ALBUTEROL SULFATE AUTOHALER [Concomitant]
  10. FLUTICASONE PROPIONATE WITH SALMETEROL [Concomitant]
  11. PERSANTIN [Suspect]
     Indication: CEREBROVASCULAR ACCIDENT
     Dosage: 300 MG
     Route: 048

REACTIONS (3)
  - AORTIC ANEURYSM RUPTURE [None]
  - PROCEDURAL COMPLICATION [None]
  - MULTI-ORGAN FAILURE [None]
